FAERS Safety Report 14355665 (Version 1)
Quarter: 2018Q1

REPORT INFORMATION
  Report Type: Spontaneous
  Country: CZ (occurrence: CZ)
  Receive Date: 20180105
  Receipt Date: 20180105
  Transmission Date: 20180509
  Serious: Yes (Disabling)
  Sender: FDA-Public Use
  Company Number: CZ-MYLANLABS-2017M1083918

PATIENT
  Age: 35 Year
  Sex: Female

DRUGS (4)
  1. SOLU-MEDROL [Suspect]
     Active Substance: METHYLPREDNISOLONE SODIUM SUCCINATE
     Indication: PRODUCT USED FOR UNKNOWN INDICATION
     Route: 065
  2. PLAQUENIL                          /00072602/ [Concomitant]
     Active Substance: HYDROXYCHLOROQUINE DIPHOSPHATE
     Indication: PRODUCT USED FOR UNKNOWN INDICATION
     Dosage: UNK
  3. PREDNISONE. [Suspect]
     Active Substance: PREDNISONE
     Indication: PRODUCT USED FOR UNKNOWN INDICATION
     Dosage: 120 MG, QD
     Route: 065
  4. IMURAN [Concomitant]
     Active Substance: AZATHIOPRINE
     Indication: PRODUCT USED FOR UNKNOWN INDICATION
     Dosage: UNK

REACTIONS (8)
  - Intervertebral disc compression [Recovering/Resolving]
  - Bone formation decreased [Recovering/Resolving]
  - Weight increased [Unknown]
  - Blood parathyroid hormone increased [Unknown]
  - Amenorrhoea [Unknown]
  - Cushingoid [Unknown]
  - Resorption bone increased [Recovering/Resolving]
  - Myopathy [Unknown]
